FAERS Safety Report 16940992 (Version 1)
Quarter: 2019Q4

REPORT INFORMATION
  Report Type: Spontaneous
  Country: JP (occurrence: JP)
  Receive Date: 20191021
  Receipt Date: 20191021
  Transmission Date: 20200122
  Serious: Yes (Hospitalization, Other)
  Sender: FDA-Public Use
  Company Number: JP-PFIZER INC-2019449864

PATIENT
  Age: 60 Year
  Sex: Male

DRUGS (4)
  1. CAMPTO [Suspect]
     Active Substance: IRINOTECAN
     Indication: PANCREATIC CARCINOMA
     Dosage: 150 MG/M2, CYCLIC (ONCE IN 2WEEKS) (CONTINUOUS INFUSION)
     Route: 041
  2. LEVOFOLINATE YAKULT [Suspect]
     Active Substance: LEVOLEUCOVORIN CALCIUM
     Indication: PANCREATIC CARCINOMA
     Dosage: UNK UNK, CYCLIC (ONCE IN 2WEEKS)
     Route: 041
  3. FLUOROURACIL. [Suspect]
     Active Substance: FLUOROURACIL
     Indication: PANCREATIC CARCINOMA
     Dosage: 2400 MG/M2, CYCLIC (46 HR) (ONCE IN 2WEEKS) (CONTINUOUS INFUSION)
     Route: 041
  4. ELPLAT [Suspect]
     Active Substance: OXALIPLATIN
     Indication: PANCREATIC CARCINOMA
     Dosage: 85 MG/M2, CYCLIC (ONCE IN 2WEEKS) (CONTINUOUS INFUSION)
     Route: 041

REACTIONS (6)
  - Neutrophil count decreased [Unknown]
  - White blood cell count decreased [Unknown]
  - Renal impairment [Unknown]
  - Nausea [Unknown]
  - Neutropenic colitis [Unknown]
  - Decreased appetite [Unknown]
